FAERS Safety Report 4982994-9 (Version None)
Quarter: 2006Q2

REPORT INFORMATION
  Report Type: 
  Country: None (occurrence: None)
  Receive Date: 20060426
  Receipt Date: 20060418
  Transmission Date: 20061013
  Serious: Yes (Other)
  Sender: FDA-Public Use
  Company Number: PHBS2006RU05601

PATIENT
  Age: 65 Year
  Sex: Female

DRUGS (2)
  1. ANTIHYPERTENSIVES [Concomitant]
     Indication: HYPERTENSION
  2. MIACALCIN [Suspect]
     Indication: OSTEOPOROSIS
     Dosage: 200 IU/DAY
     Route: 045

REACTIONS (1)
  - ALLERGIC RESPIRATORY SYMPTOM [None]
